FAERS Safety Report 5143018-6 (Version None)
Quarter: 2006Q4

REPORT INFORMATION
  Report Type: 
  Country: None (occurrence: None)
  Receive Date: 20061103
  Receipt Date: 20061025
  Transmission Date: 20070319
  Serious: Yes (Hospitalization)
  Sender: FDA-Public Use
  Company Number: 2006AP05192

PATIENT
  Age: 72 Year
  Sex: Male
  Weight: 69 kg

DRUGS (3)
  1. MARCAINE [Suspect]
     Indication: SPINAL ANAESTHESIA
     Dosage: 3.6 ML INTO SUBARACHNOID SPACE
     Route: 037
  2. EPHEDRINE HYDROCHLORIDE [Suspect]
     Indication: BLOOD PRESSURE DECREASED
  3. MIDAZOLAM [Concomitant]
     Indication: SEDATION
     Route: 042

REACTIONS (3)
  - ARTERIOSPASM CORONARY [None]
  - BLOOD PRESSURE INCREASED [None]
  - ELECTROCARDIOGRAM ST SEGMENT ELEVATION [None]
